FAERS Safety Report 12390308 (Version 1)
Quarter: 2016Q2

REPORT INFORMATION
  Report Type: Spontaneous
  Country: US (occurrence: US)
  Receive Date: 20160520
  Receipt Date: 20160520
  Transmission Date: 20160815
  Serious: No
  Sender: FDA-Public Use
  Company Number: US-BAUSCH-BL-2016-006749

PATIENT
  Age: 36 Year
  Sex: Male
  Weight: 54.48 kg

DRUGS (7)
  1. HYDROCORTISONE. [Suspect]
     Active Substance: HYDROCORTISONE
     Indication: ACNE PUSTULAR
  2. HYDROCORTISONE. [Suspect]
     Active Substance: HYDROCORTISONE
     Indication: ACNE
     Route: 065
  3. CALADRYL CLEAR [Suspect]
     Active Substance: PRAMOXINE HYDROCHLORIDE\ZINC ACETATE
     Indication: ACNE
     Route: 061
     Dates: start: 201603, end: 20160317
  4. ATIVAN [Concomitant]
     Active Substance: LORAZEPAM
     Indication: ANXIETY
     Dosage: ? DURING DAY AND 1 AT NIGHT
     Route: 048
  5. TYLENOL [Concomitant]
     Active Substance: ACETAMINOPHEN
     Indication: PAIN
     Route: 048
  6. CALADRYL CLEAR [Suspect]
     Active Substance: PRAMOXINE HYDROCHLORIDE\ZINC ACETATE
     Indication: ACNE PUSTULAR
  7. MORPHINE [Concomitant]
     Active Substance: MORPHINE
     Indication: PAIN
     Dosage: EVERY 3-4 HOURS
     Route: 048

REACTIONS (4)
  - Dry skin [Not Recovered/Not Resolved]
  - Skin discolouration [Not Recovered/Not Resolved]
  - Skin disorder [Not Recovered/Not Resolved]
  - Skin exfoliation [Not Recovered/Not Resolved]

NARRATIVE: CASE EVENT DATE: 201603
